FAERS Safety Report 21518236 (Version 1)
Quarter: 2022Q4

REPORT INFORMATION
  Report Type: Report from Study
  Country: US (occurrence: US)
  Receive Date: 20221028
  Receipt Date: 20221028
  Transmission Date: 20230112
  Serious: No
  Sender: FDA-Public Use
  Company Number: US-ABBVIE-4158718

PATIENT
  Sex: Female
  Weight: 118.38 kg

DRUGS (13)
  1. SKYRIZI [Suspect]
     Active Substance: RISANKIZUMAB-RZAA
     Indication: Psoriasis
     Dosage: FORM STRENGTH: 150 MG?WEEK 0
     Route: 058
     Dates: start: 20220915
  2. SKYRIZI [Suspect]
     Active Substance: RISANKIZUMAB-RZAA
     Indication: Psoriatic arthropathy
     Dosage: FORM STRENGTH: 150 MG?WEEK 4
     Route: 058
  3. SKYRIZI [Suspect]
     Active Substance: RISANKIZUMAB-RZAA
     Indication: Illness
  4. SKYRIZI [Suspect]
     Active Substance: RISANKIZUMAB-RZAA
     Indication: Cystitis
  5. SKYRIZI [Suspect]
     Active Substance: RISANKIZUMAB-RZAA
     Indication: Nephrolithiasis
  6. IBUPROFEN 200 MG TABLET [Concomitant]
     Indication: Product used for unknown indication
     Route: 048
  7. FLUOCINOLONE ACETONIDE [Concomitant]
     Active Substance: FLUOCINOLONE ACETONIDE
     Indication: Product used for unknown indication
  8. LEXAPRO 5 MG TABLET [Concomitant]
     Indication: Product used for unknown indication
     Route: 048
  9. TAMSULOSIN HYDROCHLORIDE [Concomitant]
     Active Substance: TAMSULOSIN HYDROCHLORIDE
     Indication: Product used for unknown indication
  10. FAMOTIDINE 10 MG TABLET [Concomitant]
     Indication: Product used for unknown indication
     Route: 048
  11. CLONAZEPAM 0.125 MG TAB RAPDIS [Concomitant]
     Indication: Product used for unknown indication
     Route: 048
  12. NITROFURANTOIN 100 MG CAPSULE [Concomitant]
     Indication: Product used for unknown indication
  13. VITAMIN D3 10 MCG TAB CHEW [Concomitant]
     Indication: Product used for unknown indication
     Dosage: 10 MCG

REACTIONS (2)
  - Kidney infection [Unknown]
  - Nephrolithiasis [Unknown]

NARRATIVE: CASE EVENT DATE: 20220101
